FAERS Safety Report 8961854 (Version 1)
Quarter: 2012Q4

REPORT INFORMATION
  Report Type: 
  Country: US (occurrence: US)
  Receive Date: 20121212
  Receipt Date: 20121212
  Transmission Date: 20130627
  Serious: No
  Sender: FDA-Public Use
  Company Number: US-ASTRAZENECA-2012SE90593

PATIENT
  Age: 377 Month
  Sex: Female
  Weight: 87.1 kg

DRUGS (3)
  1. CRESTOR [Suspect]
     Indication: BLOOD CHOLESTEROL
     Route: 048
     Dates: start: 201211
  2. BENEDRYL [Concomitant]
     Indication: MYALGIA
  3. ASPIRIN [Concomitant]

REACTIONS (3)
  - Blepharospasm [Not Recovered/Not Resolved]
  - Vision blurred [Not Recovered/Not Resolved]
  - Nightmare [Not Recovered/Not Resolved]
